FAERS Safety Report 5454025-8 (Version None)
Quarter: 2007Q3

REPORT INFORMATION
  Report Type: 
  Country: None (occurrence: None)
  Receive Date: 20070917
  Receipt Date: 20070228
  Transmission Date: 20080115
  Serious: No
  Sender: FDA-Public Use
  Company Number: US-ASTRAZENECA-2006UW04584

PATIENT
  Sex: Female
  Weight: 90.9 kg

DRUGS (5)
  1. SEROQUEL [Suspect]
     Indication: BIPOLAR DISORDER
     Route: 048
     Dates: start: 20040101, end: 20040101
  2. SEROQUEL [Suspect]
     Indication: DEPRESSION
     Route: 048
     Dates: start: 20040101, end: 20040101
  3. ZYPREXA [Suspect]
     Indication: BIPOLAR DISORDER
     Dosage: 5 - 10 MG
     Dates: start: 20040217, end: 20050816
  4. ZYPREXA [Suspect]
     Indication: DEPRESSION
     Dosage: 5 - 10 MG
     Dates: start: 20040217, end: 20050816
  5. ABILIFY [Concomitant]
     Dates: start: 20051001

REACTIONS (2)
  - ILL-DEFINED DISORDER [None]
  - TYPE 1 DIABETES MELLITUS [None]
